FAERS Safety Report 4636318-7 (Version None)
Quarter: 2005Q2

REPORT INFORMATION
  Report Type: 
  Country: None (occurrence: None)
  Receive Date: 20050415
  Receipt Date: 20040916
  Transmission Date: 20051028
  Serious: No
  Sender: FDA-Public Use
  Company Number: US-BRISTOL-MYERS SQUIBB COMPANY-12705240

PATIENT
  Age: 45 Year
  Sex: Female

DRUGS (6)
  1. PARAPLATIN [Suspect]
     Indication: LUNG NEOPLASM MALIGNANT
     Route: 042
     Dates: start: 20040915, end: 20040915
  2. TAXOL [Concomitant]
     Route: 042
     Dates: start: 20040915, end: 20040915
  3. BENADRYL [Concomitant]
     Indication: PREMEDICATION
  4. KYTRIL [Concomitant]
     Indication: PREMEDICATION
  5. DECADRON [Concomitant]
     Indication: PREMEDICATION
  6. TAGAMET [Concomitant]
     Indication: PREMEDICATION

REACTIONS (2)
  - PRURITUS [None]
  - URTICARIA [None]
